FAERS Safety Report 7038555-3 (Version None)
Quarter: 2010Q4

REPORT INFORMATION
  Report Type: 
  Country: None (occurrence: None)
  Receive Date: 20101011
  Receipt Date: 20101005
  Transmission Date: 20110411
  Serious: Yes (Other)
  Sender: FDA-Public Use
  Company Number: BR-PFIZER INC-2010123763

PATIENT
  Age: 75 Year
  Sex: Female
  Weight: 48 kg

DRUGS (10)
  1. CHAMPIX [Suspect]
     Indication: SMOKING CESSATION THERAPY
     Dosage: UNK
     Route: 048
     Dates: start: 20100901
  2. CHAMPIX [Suspect]
     Dosage: 1 MG, 2X/DAY
     Route: 048
     Dates: start: 20100101, end: 20101004
  3. METOPROLOL SUCCINATE [Concomitant]
     Dosage: UNK
     Dates: start: 20060101
  4. VASTAREL [Concomitant]
     Dosage: UNK
     Dates: start: 20060101
  5. LORAX [Concomitant]
     Dosage: UNK
     Dates: start: 20060101
  6. SPIRIVA [Concomitant]
     Indication: LUNG DISORDER
     Dosage: 18 MCG
     Dates: start: 20060101
  7. ACETYLSALICYLIC ACID [Concomitant]
  8. AMITRIPTYLINE [Concomitant]
     Indication: DEPRESSION
     Dosage: 25 MG, UNK
  9. FORASEQ [Concomitant]
  10. DIOVAN HCT [Concomitant]
     Dosage: 320 MG, UNK

REACTIONS (1)
  - PRESYNCOPE [None]
